FAERS Safety Report 8576320-6 (Version None)
Quarter: 2012Q3

REPORT INFORMATION
  Report Type: 
  Country: None (occurrence: None)
  Receive Date: 20120807
  Receipt Date: 20120802
  Transmission Date: 20120928
  Serious: Yes (Other)
  Sender: FDA-Public Use
  Company Number: US-ROCHE-1015986

PATIENT
  Sex: Male
  Weight: 90.346 kg

DRUGS (19)
  1. PEGASYS [Suspect]
     Dates: start: 20120401
  2. PEGASYS [Suspect]
     Route: 058
     Dates: start: 20110803, end: 20120601
  3. FENOFIBRATE [Concomitant]
  4. TRAZODONE HCL [Suspect]
     Route: 065
  5. RIBAVIRIN [Suspect]
     Route: 048
     Dates: start: 20110803, end: 20120601
  6. TRUVADA [Concomitant]
     Indication: HIV INFECTION
     Route: 048
     Dates: start: 20080421
  7. GABAPENTIN [Concomitant]
     Dosage: 7 AM AND 2 PM
  8. LEXAPRO [Concomitant]
     Dosage: 2 GM AT MORNING
  9. PEGASYS [Suspect]
     Indication: HEPATITIS C
     Route: 058
     Dates: start: 20110803, end: 20120701
  10. LIPITOR [Concomitant]
  11. PEGASYS [Suspect]
     Indication: HIV INFECTION
     Dates: start: 20111102
  12. RIBAVIRIN [Suspect]
     Route: 048
     Dates: start: 20111102
  13. ZOFRAN [Concomitant]
     Dosage: N/V
  14. LOMOTIL [Concomitant]
     Indication: DIARRHOEA
  15. RIBAVIRIN [Suspect]
     Indication: HEPATITIS C
     Dosage: IN DIVIDED DOSES
     Route: 048
     Dates: start: 20110803, end: 20120701
  16. TRAZODONE HYDROCHLORIDE [Concomitant]
     Dosage: 2GRAM AT NIGHT
  17. PEGASYS [Suspect]
     Route: 058
     Dates: start: 20110308, end: 20120106
  18. TRAZODONE HCL [Suspect]
     Indication: PRODUCT USED FOR UNKNOWN INDICATION
     Route: 065
  19. REYATAZ [Concomitant]
     Indication: HIV INFECTION
     Route: 048
     Dates: start: 20080421

REACTIONS (18)
  - RASH GENERALISED [None]
  - SKIN ULCER [None]
  - PLATELET COUNT DECREASED [None]
  - SKIN DISORDER [None]
  - THROMBOCYTOPENIA [None]
  - PRURITUS [None]
  - FALL [None]
  - BASAL CELL CARCINOMA [None]
  - HYPOTONIA [None]
  - RESPIRATORY TRACT INFECTION [None]
  - DECREASED APPETITE [None]
  - NEUTROPHIL COUNT DECREASED [None]
  - HEAD INJURY [None]
  - FATIGUE [None]
  - ECZEMA [None]
  - NEUTROPENIA [None]
  - SKELETAL INJURY [None]
  - BLOOD DISORDER [None]
